FAERS Safety Report 10009001 (Version 2)
Quarter: 2014Q1

REPORT INFORMATION
  Report Type: Spontaneous
  Country: US (occurrence: US)
  Receive Date: 20140313
  Receipt Date: 20140313
  Transmission Date: 20141002
  Serious: Yes (Other)
  Sender: FDA-Public Use
  Company Number: US-INCYTE CORPORATION-2012IN001098

PATIENT
  Age: 74 Year
  Sex: Male
  Weight: 68.48 kg

DRUGS (2)
  1. JAKAFI [Suspect]
     Indication: MYELOFIBROSIS
     Dosage: 20 MG, QD
     Route: 048
     Dates: start: 20120220, end: 20120403
  2. JAKAFI [Suspect]
     Dosage: LOWER DOSE (UNSPECIFIED)
     Dates: start: 20120716

REACTIONS (5)
  - Anaemia [Not Recovered/Not Resolved]
  - Hypotension [Unknown]
  - Accidental overdose [Unknown]
  - Nausea [Unknown]
  - Vomiting [Unknown]
